FAERS Safety Report 10069319 (Version 2)
Quarter: 2014Q2

REPORT INFORMATION
  Report Type: Report from Study
  Country: BR (occurrence: BR)
  Receive Date: 20140409
  Receipt Date: 20140428
  Transmission Date: 20141212
  Serious: Yes (Other)
  Sender: FDA-Public Use
  Company Number: BR-ELI_LILLY_AND_COMPANY-BR201404000541

PATIENT
  Age: 47 Year
  Sex: Female
  Weight: 59.5 kg

DRUGS (8)
  1. TERIPARATIDE [Suspect]
     Indication: MULTIPLE FRACTURES
     Dosage: UNK, QD
     Route: 065
     Dates: start: 20131002, end: 20131102
  2. TERIPARATIDE [Suspect]
     Dosage: UNK, QD
     Route: 065
  3. PREDNISOLONE [Concomitant]
     Indication: PRODUCT USED FOR UNKNOWN INDICATION
     Dosage: 5 MG, BID
     Route: 065
  4. FOLIC ACID [Concomitant]
     Indication: PRODUCT USED FOR UNKNOWN INDICATION
     Dosage: 5 MG, WEEKLY (1/W)
     Route: 065
  5. CALCIUM CARBONATE [Concomitant]
     Indication: PRODUCT USED FOR UNKNOWN INDICATION
     Dosage: 2 DF, QD
     Route: 065
  6. OMEPRAZOLE [Concomitant]
     Indication: PRODUCT USED FOR UNKNOWN INDICATION
     Dosage: 20 MG, QD
     Route: 065
  7. METOTREXATO                        /00113801/ [Concomitant]
     Indication: PRODUCT USED FOR UNKNOWN INDICATION
     Dosage: 50 MG, WEEKLY (1/W)
     Route: 058
  8. FLUOXETINE [Concomitant]
     Indication: PRODUCT USED FOR UNKNOWN INDICATION
     Dosage: 20 MG, QD
     Route: 065

REACTIONS (9)
  - Pleural effusion [Unknown]
  - Tuberculosis [Recovered/Resolved with Sequelae]
  - Fatigue [Unknown]
  - Pain [Not Recovered/Not Resolved]
  - Swelling [Unknown]
  - Dengue fever [Recovered/Resolved]
  - Spinal fracture [Not Recovered/Not Resolved]
  - Off label use [Unknown]
  - Haematoma [Unknown]
